FAERS Safety Report 21337040 (Version 1)
Quarter: 2022Q3

REPORT INFORMATION
  Report Type: Spontaneous
  Country: GR (occurrence: GR)
  Receive Date: 20220915
  Receipt Date: 20220915
  Transmission Date: 20221027
  Serious: Yes (Other)
  Sender: FDA-Public Use
  Company Number: GR-PFIZER INC-202201155006

PATIENT
  Age: 38 Year
  Sex: Female

DRUGS (2)
  1. PROSTIN E2 [Suspect]
     Active Substance: DINOPROSTONE
     Indication: Induced labour
     Dosage: UNK
  2. PROSTIN E2 [Suspect]
     Active Substance: DINOPROSTONE
     Indication: Induction of cervix ripening

REACTIONS (2)
  - Foetal death [Unknown]
  - Premature separation of placenta [Unknown]
